FAERS Safety Report 18316150 (Version 1)
Quarter: 2020Q3

REPORT INFORMATION
  Report Type: Spontaneous
  Country: DE (occurrence: DE)
  Receive Date: 20200927
  Receipt Date: 20200927
  Transmission Date: 20201103
  Serious: Yes (Hospitalization)
  Sender: FDA-Public Use
  Company Number: DE-DEXPHARM-20200858

PATIENT
  Age: 16 Year
  Sex: Female
  Weight: 64 kg

DRUGS (7)
  1. CITALOPRAM [Concomitant]
     Active Substance: CITALOPRAM HYDROBROMIDE
     Indication: BORDERLINE PERSONALITY DISORDER
     Dosage: DAILY DOSE: 1 DF DOSAGE FORM EVERY DAY
     Route: 048
  2. VENLAFAXINE [Suspect]
     Active Substance: VENLAFAXINE HYDROCHLORIDE
     Indication: SUICIDAL IDEATION
     Dosage: DAILY DOSE: 20 DF DOSAGE FORM EVERY DAY
     Route: 048
     Dates: start: 20190910
  3. L?THYROXIN 125?G [Concomitant]
     Indication: HYPOTHYROIDISM
     Dosage: DAILY DOSE: 0.5 DF DOSAGE FORM EVERY DAY
  4. RISPERIDON 1MG [Concomitant]
     Active Substance: RISPERIDONE
     Indication: BORDERLINE PERSONALITY DISORDER
     Dosage: DAILY DOSE: 1 DF DOSAGE FORM EVERY DAY
  5. LEVOMEPROMAZIN 25MG [Concomitant]
     Active Substance: LEVOMEPROMAZINE
     Indication: BORDERLINE PERSONALITY DISORDER
  6. RISPERIDONE. [Interacting]
     Active Substance: RISPERIDONE
     Indication: SUICIDAL IDEATION
     Dosage: DAILY DOSE: 10 DF DOSAGE FORM EVERY DAY
     Route: 048
     Dates: start: 20190910
  7. OLANZAPIN 2.5MG [Interacting]
     Active Substance: OLANZAPINE
     Indication: SUICIDAL IDEATION
     Dosage: DAILY DOSE: 4 DF DOSAGE FORM EVERY DAY
     Route: 048
     Dates: start: 20190910

REACTIONS (2)
  - Somnolence [Unknown]
  - Drug interaction [Unknown]

NARRATIVE: CASE EVENT DATE: 20190910
